FAERS Safety Report 6935005-X (Version None)
Quarter: 2010Q3

REPORT INFORMATION
  Report Type: 
  Country: None (occurrence: None)
  Receive Date: 20100822
  Receipt Date: 20100809
  Transmission Date: 20110219
  Serious: Yes (Hospitalization)
  Sender: FDA-Public Use
  Company Number: PHHY2010DE52515

PATIENT

DRUGS (2)
  1. EXELON [Suspect]
     Dosage: 9.5 MG, UNK
     Route: 062
  2. EXELON [Suspect]
     Dosage: 8 DF, QD
     Route: 062

REACTIONS (2)
  - AGITATION [None]
  - WRONG TECHNIQUE IN DRUG USAGE PROCESS [None]
